FAERS Safety Report 5192352-2 (Version None)
Quarter: 2006Q4

REPORT INFORMATION
  Report Type: 
  Country: None (occurrence: None)
  Receive Date: 20061227
  Receipt Date: 20061129
  Transmission Date: 20070319
  Serious: Yes (Other)
  Sender: FDA-Public Use
  Company Number: JP-PFIZER INC-2006148135

PATIENT

DRUGS (1)
  1. SOLU-MEDROL [Suspect]
     Indication: RESPIRATORY DISORDER
     Dosage: DAILY DOSE:500MG
     Route: 042

REACTIONS (3)
  - ASPARTATE AMINOTRANSFERASE INCREASED [None]
  - LIVER FUNCTION TEST ABNORMAL [None]
  - THERAPY NON-RESPONDER [None]
